FAERS Safety Report 5456917-2 (Version None)
Quarter: 2007Q3

REPORT INFORMATION
  Report Type: 
  Country: None (occurrence: None)
  Receive Date: 20070918
  Receipt Date: 20061206
  Transmission Date: 20080115
  Serious: No
  Sender: FDA-Public Use
  Company Number: US-ASTRAZENECA-2006UW27160

PATIENT
  Sex: Male

DRUGS (3)
  1. SEROQUEL [Suspect]
     Indication: SLEEP DISORDER
     Route: 048
  2. HALDOL [Concomitant]
  3. VALIUM [Concomitant]

REACTIONS (3)
  - DRY MOUTH [None]
  - MUSCLE TIGHTNESS [None]
  - POLLAKIURIA [None]
